FAERS Safety Report 24524353 (Version 2)
Quarter: 2024Q4

REPORT INFORMATION
  Report Type: Spontaneous
  Country: BE (occurrence: BE)
  Receive Date: 20241018
  Receipt Date: 20241203
  Transmission Date: 20250115
  Serious: Yes (Other)
  Sender: ROCHE
  Company Number: BE-ROCHE-10000109914

PATIENT
  Age: 49 Year
  Sex: Female

DRUGS (1)
  1. ALECTINIB [Suspect]
     Active Substance: ALECTINIB
     Indication: Lung neoplasm malignant
     Route: 065

REACTIONS (12)
  - Bradycardia [Unknown]
  - Diarrhoea [Unknown]
  - Skin discolouration [Unknown]
  - Fatigue [Unknown]
  - Cancer pain [Unknown]
  - Migraine [Unknown]
  - Renal pain [Unknown]
  - Metastases to central nervous system [Unknown]
  - Vision blurred [Unknown]
  - Nausea [Unknown]
  - Constipation [Unknown]
  - Weight increased [Unknown]
